FAERS Safety Report 15804324 (Version 1)
Quarter: 2019Q1

REPORT INFORMATION
  Report Type: Spontaneous
  Country: US (occurrence: US)
  Receive Date: 20190109
  Receipt Date: 20190109
  Transmission Date: 20190417
  Serious: Yes (Hospitalization, Other)
  Sender: FDA-Public Use
  Company Number: US-SHIRE-US201900556

PATIENT
  Sex: Female

DRUGS (1)
  1. NATPARA (PARATHYROID HORMONE) [Suspect]
     Active Substance: PARATHYROID HORMONE
     Indication: HYPOPARATHYROIDISM
     Route: 065

REACTIONS (10)
  - Suicidal ideation [Unknown]
  - Migraine [Unknown]
  - Hospitalisation [Unknown]
  - Tetany [Unknown]
  - Stress [Unknown]
  - Muscle spasms [Unknown]
  - Cardiac arrest [Unknown]
  - Drug ineffective [Unknown]
  - Loss of consciousness [Unknown]
  - Alopecia [Unknown]
